FAERS Safety Report 9629657 (Version 2)
Quarter: 2013Q4

REPORT INFORMATION
  Report Type: Spontaneous
  Country: US (occurrence: US)
  Receive Date: 20131017
  Receipt Date: 20131125
  Transmission Date: 20140711
  Serious: Yes (Other)
  Sender: FDA-Public Use
  Company Number: US-PFIZER INC-2013293665

PATIENT
  Age: 52 Year
  Sex: Male

DRUGS (2)
  1. ZYVOX [Suspect]
     Indication: WOUND INFECTION STAPHYLOCOCCAL
     Dosage: 600 MG, 2X/DAY
     Route: 042
     Dates: start: 20131007, end: 20131008
  2. SEROQUEL [Interacting]
     Indication: DELIRIUM
     Dosage: 400 MG, 2X/DAY
     Dates: start: 20131005, end: 20131007

REACTIONS (2)
  - Serotonin syndrome [Recovered/Resolved with Sequelae]
  - Drug interaction [Recovered/Resolved with Sequelae]
